FAERS Safety Report 10718689 (Version 2)
Quarter: 2015Q1

REPORT INFORMATION
  Report Type: Spontaneous
  Country: US (occurrence: US)
  Receive Date: 20150119
  Receipt Date: 20150119
  Transmission Date: 20150721
  Serious: No
  Sender: FDA-Public Use
  Company Number: US-UNITED THERAPEUTICS-UNT-2014-002036

PATIENT
  Age: 53 Year
  Sex: Female
  Weight: 68.95 kg

DRUGS (1)
  1. REMODULIN [Suspect]
     Active Substance: TREPROSTINIL
     Indication: PULMONARY ARTERIAL HYPERTENSION
     Dosage: 0.1205 UG/KG/MIN,  UNK
     Route: 042
     Dates: start: 20101105

REACTIONS (3)
  - Device leakage [Unknown]
  - Drug dose omission [Unknown]
  - Pallor [Unknown]

NARRATIVE: CASE EVENT DATE: 20140604
